FAERS Safety Report 9745298 (Version 3)
Quarter: 2014Q2

REPORT INFORMATION
  Report Type: Spontaneous
  Country: DK (occurrence: DK)
  Receive Date: 20131211
  Receipt Date: 20140402
  Transmission Date: 20141212
  Serious: Yes (Hospitalization, Other)
  Sender: FDA-Public Use
  Company Number: DK-AMGEN-DNKSP2012056877

PATIENT
  Age: 65 Year
  Sex: Male
  Weight: 90 kg

DRUGS (9)
  1. ENBREL [Suspect]
     Indication: RHEUMATOID ARTHRITIS
     Dosage: 50 MG, QWK
     Route: 058
     Dates: start: 20111230, end: 20120719
  2. METHOTREXATE [Concomitant]
     Dosage: 7.5 MG, WEEKLY
     Route: 058
     Dates: start: 20041220, end: 20120719
  3. UNIKALK SENIOR [Concomitant]
     Dosage: UNK
  4. HJERTEMAGNYL                       /00228701/ [Concomitant]
     Dosage: 75 MG, 1X/DAY
  5. FOLINSYRE SAD                      /00024201/ [Concomitant]
     Dosage: 1 MG, 1X/DAY
  6. LOSARSTAD [Concomitant]
     Dosage: 50 MG, 2X/DAY
  7. SIMVASTATIN [Concomitant]
     Dosage: 40 MG, 1X/DAY
  8. PINEX                              /00020001/ [Concomitant]
     Dosage: 500 MG X 2 (X 2-3 DAILY)
  9. CIPRALEX                           /01588501/ [Concomitant]
     Dosage: 15 MG, 1X/DAY

REACTIONS (17)
  - Brain stem thrombosis [Unknown]
  - Paralysis [Not Recovered/Not Resolved]
  - Dysarthria [Unknown]
  - Dysphagia [Unknown]
  - Sensory loss [Unknown]
  - Discomfort [Unknown]
  - Muscular weakness [Unknown]
  - Urinary incontinence [Unknown]
  - Faecal incontinence [Unknown]
  - Cerebral thrombosis [Unknown]
  - Dyspnoea [Unknown]
  - Tongue movement disturbance [Unknown]
  - Myelitis [Unknown]
  - Urinary retention [Unknown]
  - Encephalitis [Unknown]
  - Meningitis tuberculous [Not Recovered/Not Resolved]
  - Paraesthesia [Unknown]
